FAERS Safety Report 6813604-3 (Version None)
Quarter: 2010Q3

REPORT INFORMATION
  Report Type: 
  Country: None (occurrence: None)
  Receive Date: 20100701
  Receipt Date: 20100519
  Transmission Date: 20110219
  Serious: Yes (Death, Life-Threatening, Other)
  Sender: FDA-Public Use
  Company Number: US-BAXTER-2009BH018185

PATIENT
  Age: 69 Year
  Sex: Female
  Weight: 67 kg

DRUGS (74)
  1. HEPARIN SODIUM [Suspect]
     Indication: STENT PLACEMENT
     Route: 042
     Dates: start: 20071024, end: 20071024
  2. HEPARIN SODIUM [Suspect]
     Indication: CATHETERISATION CARDIAC
     Route: 042
     Dates: start: 20071024, end: 20071024
  3. HEPARIN SODIUM [Suspect]
     Indication: THROMBOSIS PROPHYLAXIS
     Route: 042
     Dates: start: 20071024, end: 20071024
  4. HEPARIN SODIUM [Suspect]
     Indication: CAROTID ARTERY BYPASS
     Route: 042
     Dates: start: 20071024, end: 20071024
  5. HEPARIN SODIUM [Suspect]
     Indication: AORTIC BYPASS
     Route: 042
     Dates: start: 20071024, end: 20071024
  6. HEPARIN SODIUM [Suspect]
     Indication: THERAPEUTIC EMBOLISATION
     Route: 042
     Dates: start: 20071024, end: 20071024
  7. HEPARIN SODIUM [Suspect]
     Route: 042
     Dates: start: 20071024, end: 20071024
  8. HEPARIN SODIUM [Suspect]
     Route: 042
     Dates: start: 20071024, end: 20071024
  9. HEPARIN SODIUM [Suspect]
     Route: 042
     Dates: start: 20071024, end: 20071024
  10. HEPARIN SODIUM [Suspect]
     Route: 042
     Dates: start: 20071024, end: 20071024
  11. HEPARIN SODIUM [Suspect]
     Route: 042
     Dates: start: 20071024, end: 20071024
  12. HEPARIN SODIUM [Suspect]
     Route: 042
     Dates: start: 20071024, end: 20071024
  13. HEPARIN SODIUM [Suspect]
     Route: 042
     Dates: start: 20071127, end: 20071127
  14. HEPARIN SODIUM [Suspect]
     Route: 042
     Dates: start: 20071127, end: 20071127
  15. HEPARIN SODIUM [Suspect]
     Route: 042
     Dates: start: 20071127, end: 20071127
  16. HEPARIN SODIUM [Suspect]
     Route: 042
     Dates: start: 20071127, end: 20071127
  17. HEPARIN SODIUM [Suspect]
     Route: 042
     Dates: start: 20071127, end: 20071127
  18. HEPARIN SODIUM [Suspect]
     Route: 042
     Dates: start: 20071127, end: 20071127
  19. HEPARIN SODIUM [Suspect]
     Route: 042
     Dates: start: 20071130, end: 20071130
  20. HEPARIN SODIUM [Suspect]
     Route: 042
     Dates: start: 20071130, end: 20071130
  21. HEPARIN SODIUM [Suspect]
     Route: 042
     Dates: start: 20071130, end: 20071130
  22. HEPARIN SODIUM [Suspect]
     Route: 042
     Dates: start: 20071130, end: 20071130
  23. HEPARIN SODIUM [Suspect]
     Route: 042
     Dates: start: 20071130, end: 20071130
  24. HEPARIN SODIUM [Suspect]
     Route: 042
     Dates: start: 20071130, end: 20071130
  25. HEPARIN SODIUM [Suspect]
     Route: 042
     Dates: start: 20071130, end: 20071130
  26. HEPARIN SODIUM [Suspect]
     Route: 042
     Dates: start: 20071130, end: 20071130
  27. HEPARIN SODIUM [Suspect]
     Route: 042
     Dates: start: 20071130, end: 20071130
  28. HEPARIN SODIUM [Suspect]
     Route: 042
     Dates: start: 20071130, end: 20071130
  29. HEPARIN SODIUM [Suspect]
     Route: 042
     Dates: start: 20071130, end: 20071130
  30. HEPARIN SODIUM [Suspect]
     Route: 042
     Dates: start: 20071130, end: 20071130
  31. HEPARIN SODIUM [Suspect]
     Route: 058
     Dates: start: 20071202, end: 20071204
  32. HEPARIN SODIUM [Suspect]
     Route: 058
     Dates: start: 20071202, end: 20071204
  33. HEPARIN SODIUM [Suspect]
     Route: 058
     Dates: start: 20071202, end: 20071204
  34. HEPARIN SODIUM [Suspect]
     Route: 058
     Dates: start: 20071202, end: 20071204
  35. HEPARIN SODIUM [Suspect]
     Route: 058
     Dates: start: 20071202, end: 20071204
  36. HEPARIN SODIUM [Suspect]
     Route: 058
     Dates: start: 20071202, end: 20071204
  37. HEPARIN SODIUM 5,000 UNITS IN DEXTROSE 5% [Suspect]
     Indication: THROMBOSIS PROPHYLAXIS
     Route: 041
     Dates: start: 20071025, end: 20071027
  38. HEPARIN SODIUM 5,000 UNITS IN DEXTROSE 5% [Suspect]
     Route: 041
     Dates: start: 20071127, end: 20071129
  39. AMIODARONE HYDROCHLORIDE [Suspect]
     Indication: ATRIAL FIBRILLATION
     Route: 042
     Dates: start: 20071202
  40. METOPROLOL TARTRATE [Concomitant]
     Indication: PRODUCT USED FOR UNKNOWN INDICATION
     Route: 065
  41. GLIMEPIRIDE [Concomitant]
     Indication: PRODUCT USED FOR UNKNOWN INDICATION
     Route: 065
  42. OMEPRAZOLE [Concomitant]
     Indication: PRODUCT USED FOR UNKNOWN INDICATION
     Route: 065
  43. STARLIX [Concomitant]
     Indication: PRODUCT USED FOR UNKNOWN INDICATION
     Route: 065
  44. ENALAPRIL MALEATE [Concomitant]
     Indication: PRODUCT USED FOR UNKNOWN INDICATION
     Route: 065
  45. CITALOPRAM HYDROBROMIDE [Concomitant]
     Indication: PRODUCT USED FOR UNKNOWN INDICATION
     Route: 065
  46. SIMVASTATIN [Concomitant]
     Indication: PRODUCT USED FOR UNKNOWN INDICATION
     Route: 065
  47. ASPIRIN [Concomitant]
     Indication: PRODUCT USED FOR UNKNOWN INDICATION
     Route: 065
  48. VITAMINS [Concomitant]
     Indication: PRODUCT USED FOR UNKNOWN INDICATION
     Route: 065
  49. PLAVIX [Concomitant]
     Indication: PRODUCT USED FOR UNKNOWN INDICATION
     Route: 065
  50. WARFARIN SODIUM [Concomitant]
     Indication: PRODUCT USED FOR UNKNOWN INDICATION
     Route: 065
  51. SODIUM CHLORIDE 0.9% IN PLASTIC CONTAINER [Concomitant]
     Indication: PRODUCT USED FOR UNKNOWN INDICATION
     Route: 042
  52. MAGNESIUM SULFATE [Concomitant]
     Indication: PRODUCT USED FOR UNKNOWN INDICATION
     Route: 042
  53. NOVOLOG [Concomitant]
     Indication: BLOOD GLUCOSE
     Route: 058
  54. CEFAZOLIN [Concomitant]
     Indication: PRODUCT USED FOR UNKNOWN INDICATION
     Route: 042
  55. PHENYLEPHRINE [Concomitant]
     Indication: PRODUCT USED FOR UNKNOWN INDICATION
     Route: 041
  56. LEVOFLOXACIN [Concomitant]
     Indication: PRODUCT USED FOR UNKNOWN INDICATION
     Route: 048
  57. DIPHENHYDRAMINE [Concomitant]
     Route: 042
  58. FUROSEMIDE [Concomitant]
     Indication: PRODUCT USED FOR UNKNOWN INDICATION
     Route: 042
  59. PREDNISONE TAB [Concomitant]
     Indication: PRODUCT USED FOR UNKNOWN INDICATION
     Route: 048
  60. DILTIAZEM [Concomitant]
     Indication: PRODUCT USED FOR UNKNOWN INDICATION
     Route: 041
  61. AMIODARONE [Concomitant]
     Indication: ATRIAL FIBRILLATION
     Route: 041
  62. RANITIDINE [Concomitant]
     Indication: PRODUCT USED FOR UNKNOWN INDICATION
     Route: 042
  63. MORPHINE [Concomitant]
     Indication: PAIN
     Route: 042
  64. HYDROMORPHONE [Concomitant]
     Indication: PRODUCT USED FOR UNKNOWN INDICATION
     Route: 042
  65. EPINEPHRINE [Concomitant]
     Indication: PRODUCT USED FOR UNKNOWN INDICATION
     Route: 041
  66. ASPIRIN [Concomitant]
     Indication: PRODUCT USED FOR UNKNOWN INDICATION
     Route: 048
  67. CYCLOBENZAPRINE [Concomitant]
     Indication: PRODUCT USED FOR UNKNOWN INDICATION
     Route: 048
  68. DOCUSATE SODIUM [Concomitant]
     Indication: PRODUCT USED FOR UNKNOWN INDICATION
     Route: 048
  69. MIDODRINE HYDROCHLORIDE [Concomitant]
     Indication: PRODUCT USED FOR UNKNOWN INDICATION
     Route: 048
  70. POTASSIUM CHLORIDE [Concomitant]
     Indication: PRODUCT USED FOR UNKNOWN INDICATION
     Route: 042
  71. POTASSIUM CHLORIDE [Concomitant]
     Route: 048
  72. ACETAMINOPHEN [Concomitant]
     Indication: PYREXIA
     Route: 048
  73. 5% DEXTROSE INJECTION [Concomitant]
     Indication: PRODUCT USED FOR UNKNOWN INDICATION
     Route: 042
  74. SODIUM BICARBONATE [Concomitant]
     Indication: PRODUCT USED FOR UNKNOWN INDICATION
     Route: 042

REACTIONS (24)
  - ATELECTASIS [None]
  - ATRIAL FIBRILLATION [None]
  - ATRIOVENTRICULAR BLOCK [None]
  - BRADYCARDIA [None]
  - CARDIAC FAILURE CONGESTIVE [None]
  - CARDIO-RESPIRATORY ARREST [None]
  - CONFUSIONAL STATE [None]
  - DIZZINESS [None]
  - EYE DISORDER [None]
  - FEELING HOT [None]
  - FLUID OVERLOAD [None]
  - HAEMATOMA [None]
  - HALLUCINATION [None]
  - HYPERHIDROSIS [None]
  - HYPOTENSION [None]
  - HYPOVOLAEMIA [None]
  - LISTLESS [None]
  - OCULAR ICTERUS [None]
  - PLEURAL EFFUSION [None]
  - RENAL FAILURE [None]
  - RESPIRATORY DISTRESS [None]
  - THROMBOCYTOPENIA [None]
  - UNRESPONSIVE TO STIMULI [None]
  - VENTRICULAR FIBRILLATION [None]
